FAERS Safety Report 7591255-3 (Version None)
Quarter: 2011Q3

REPORT INFORMATION
  Report Type: 
  Country: None (occurrence: None)
  Receive Date: 20110706
  Receipt Date: 20110628
  Transmission Date: 20111222
  Serious: Yes (Hospitalization)
  Sender: FDA-Public Use
  Company Number: US-BIOGENIDEC-2011BI012344

PATIENT
  Age: 50 Year
  Sex: Female

DRUGS (2)
  1. TYSABRI [Suspect]
     Indication: MULTIPLE SCLEROSIS
     Route: 042
     Dates: start: 20091218, end: 20101222
  2. TYSABRI [Suspect]
     Route: 042
     Dates: end: 20110330

REACTIONS (3)
  - MUSCLE ATROPHY [None]
  - MULTIPLE SCLEROSIS RELAPSE [None]
  - MULTIPLE SCLEROSIS [None]
